FAERS Safety Report 7244842-6 (Version None)
Quarter: 2011Q1

REPORT INFORMATION
  Report Type: 
  Country: None (occurrence: None)
  Receive Date: 20110126
  Receipt Date: 20110123
  Transmission Date: 20110831
  Serious: No
  Sender: FDA-Public Use
  Company Number: US-PFIZER INC-2011015952

PATIENT
  Sex: Female
  Weight: 60 kg

DRUGS (4)
  1. SYNTHROID [Concomitant]
     Indication: HYPOTHYROIDISM
     Dosage: UNK
  2. ADVIL [Suspect]
     Indication: MYALGIA
     Dosage: 200 MG, DAILY
     Route: 048
     Dates: start: 20110121, end: 20110123
  3. ZESTRIL [Concomitant]
     Indication: HYPERTENSION
     Dosage: UNK
  4. ATENOLOL [Concomitant]
     Indication: HYPERTENSION
     Dosage: UNK

REACTIONS (2)
  - PRURITUS [None]
  - RASH ERYTHEMATOUS [None]
